FAERS Safety Report 6770872-4 (Version None)
Quarter: 2010Q2

REPORT INFORMATION
  Report Type: 
  Country: None (occurrence: None)
  Receive Date: 20100614
  Receipt Date: 20100607
  Transmission Date: 20101027
  Serious: Yes (Hospitalization)
  Sender: FDA-Public Use
  Company Number: 2010SP031570

PATIENT
  Age: 57 Year
  Sex: Male
  Weight: 71.1 kg

DRUGS (5)
  1. MIRTAZAPINE [Suspect]
     Indication: DEPRESSION
     Dosage: 45 MG;QD;PO;  30 MG;QD;PO;  15 MG;QD;PO
     Route: 048
     Dates: end: 20100324
  2. MIRTAZAPINE [Suspect]
     Indication: DEPRESSION
     Dosage: 45 MG;QD;PO;  30 MG;QD;PO;  15 MG;QD;PO
     Route: 048
     Dates: start: 20100325, end: 20100419
  3. MIRTAZAPINE [Suspect]
     Indication: DEPRESSION
     Dosage: 45 MG;QD;PO;  30 MG;QD;PO;  15 MG;QD;PO
     Route: 048
     Dates: start: 20100420, end: 20100426
  4. VENLAFAXINE HCL [Suspect]
     Indication: DEPRESSION
     Dosage: 75 MG;QD;PO; 100 MG;QD;PO
     Route: 048
     Dates: start: 20100316, end: 20100325
  5. VENLAFAXINE HCL [Suspect]
     Indication: DEPRESSION
     Dosage: 75 MG;QD;PO; 100 MG;QD;PO
     Route: 048
     Dates: start: 20100316, end: 20100327

REACTIONS (7)
  - AMYOTROPHY [None]
  - DELUSION [None]
  - FEELING HOT [None]
  - HEADACHE [None]
  - HYPOCHONDRIASIS [None]
  - MUSCULOSKELETAL DISORDER [None]
  - ORGAN FAILURE [None]
